FAERS Safety Report 7602849-0 (Version None)
Quarter: 2011Q3

REPORT INFORMATION
  Report Type: 
  Country: None (occurrence: None)
  Receive Date: 20110712
  Receipt Date: 20110705
  Transmission Date: 20111222
  Serious: Yes (Other)
  Sender: FDA-Public Use
  Company Number: NL-JNJFOC-20110702300

PATIENT

DRUGS (8)
  1. CYCLOPHOSPHAMIDE [Suspect]
     Indication: T-CELL LYMPHOMA
     Route: 065
  2. COTRIM [Concomitant]
     Indication: PROPHYLAXIS
     Route: 065
  3. VALACICLOVIR [Concomitant]
     Indication: PROPHYLAXIS
     Route: 065
  4. FLUCONAZOLE [Concomitant]
     Indication: PROPHYLAXIS
     Route: 065
  5. ALEMTUZUMAB [Suspect]
     Indication: T-CELL LYMPHOMA
     Route: 065
  6. DOXORUBICIN HYDROCHLORIDE [Suspect]
     Indication: T-CELL LYMPHOMA
     Route: 042
  7. VINCRISTINE [Suspect]
     Indication: T-CELL LYMPHOMA
     Route: 065
  8. PREDNISONE [Suspect]
     Indication: T-CELL LYMPHOMA
     Route: 065

REACTIONS (1)
  - CYTOMEGALOVIRUS INFECTION [None]
